FAERS Safety Report 4284977-3 (Version None)
Quarter: 2004Q1

REPORT INFORMATION
  Report Type: 
  Country: None (occurrence: None)
  Receive Date: 20040202
  Receipt Date: 20040126
  Transmission Date: 20041129
  Serious: Yes (Other)
  Sender: FDA-Public Use
  Company Number: 2004196435CH

PATIENT
  Sex: Female

DRUGS (5)
  1. CABERGOLINE [Suspect]
     Indication: PARKINSON'S DISEASE
     Dosage: 1-2MG/DAY ORAL
     Route: 048
     Dates: start: 20020725
  2. MADOPAR DISPERSIBLE (BENSERAZIDE HYDROCHLORIDE) [Concomitant]
  3. PARACETAMOL WITH CODEINE [Concomitant]
  4. TRAMADOL HCL [Concomitant]
  5. RAMIPRIL [Concomitant]

REACTIONS (4)
  - AORTIC VALVE INCOMPETENCE [None]
  - CARDIAC VALVE DISEASE [None]
  - MITRAL VALVE INCOMPETENCE [None]
  - PULMONARY HYPERTENSION [None]
